FAERS Safety Report 6861447-7 (Version None)
Quarter: 2010Q3

REPORT INFORMATION
  Report Type: 
  Country: None (occurrence: None)
  Receive Date: 20100715
  Receipt Date: 20100702
  Transmission Date: 20110219
  Serious: Yes (Death)
  Sender: FDA-Public Use
  Company Number: 2010P1000144

PATIENT

DRUGS (1)
  1. AMMONUL [Suspect]

REACTIONS (1)
  - HEPATIC FAILURE [None]
